FAERS Safety Report 21597717 (Version 1)
Quarter: 2022Q4

REPORT INFORMATION
  Report Type: Spontaneous
  Country: US (occurrence: US)
  Receive Date: 20221115
  Receipt Date: 20221115
  Transmission Date: 20230113
  Serious: Yes (Other)
  Sender: FDA-Public Use
  Company Number: US-SA-SAC20221115000325

PATIENT
  Age: 69 Year
  Sex: Female
  Weight: 98.883 kg

DRUGS (13)
  1. DUPIXENT [Suspect]
     Active Substance: DUPILUMAB
     Indication: Dermatitis atopic
     Dosage: 300 MG QOW
     Route: 058
     Dates: start: 202110
  2. VITAMIN D3 [Concomitant]
     Active Substance: CHOLECALCIFEROL
  3. TADALAFIL [Concomitant]
     Active Substance: TADALAFIL
  4. PANTOPRAZOLE SODIUM [PANTOPRAZOLE SODIUM SESQUIHYDRATE] [Concomitant]
  5. TORSEMIDE [Concomitant]
     Active Substance: TORSEMIDE
  6. XARELTO [Concomitant]
     Active Substance: RIVAROXABAN
  7. MINERALS\VITAMINS [Concomitant]
     Active Substance: MINERALS\VITAMINS
  8. BRILINTA [Concomitant]
     Active Substance: TICAGRELOR
  9. ROSUVASTATIN CALCIUM [Concomitant]
     Active Substance: ROSUVASTATIN CALCIUM
  10. KLONOPIN [Concomitant]
     Active Substance: CLONAZEPAM
  11. EFFEXOR XR [Concomitant]
     Active Substance: VENLAFAXINE HYDROCHLORIDE
  12. MIRTAZAPINE [Concomitant]
     Active Substance: MIRTAZAPINE
  13. OXYGEN [Concomitant]
     Active Substance: OXYGEN

REACTIONS (7)
  - Loss of consciousness [Recovered/Resolved]
  - Lower limb fracture [Not Recovered/Not Resolved]
  - Pain [Not Recovered/Not Resolved]
  - Skin haemorrhage [Not Recovered/Not Resolved]
  - Condition aggravated [Not Recovered/Not Resolved]
  - Pruritus [Not Recovered/Not Resolved]
  - Dermatitis atopic [Not Recovered/Not Resolved]
